FAERS Safety Report 19432850 (Version 1)
Quarter: 2021Q2

REPORT INFORMATION
  Report Type: Spontaneous
  Country: TW (occurrence: TW)
  Receive Date: 20210618
  Receipt Date: 20210618
  Transmission Date: 20210717
  Serious: Yes (Other)
  Sender: FDA-Public Use
  Company Number: TW-ALKEM LABORATORIES LIMITED-TW-ALKEM-2021-03464

PATIENT
  Age: 75 Year
  Sex: Male

DRUGS (2)
  1. ISONIAZID. [Suspect]
     Active Substance: ISONIAZID
     Indication: LATENT TUBERCULOSIS
     Dosage: 900 MILLIGRAM, ONCE WEEKLY
     Route: 065
  2. RIFAPENTINE [Suspect]
     Active Substance: RIFAPENTINE
     Indication: LATENT TUBERCULOSIS
     Dosage: 900 MILLIGRAM, ONCE WEEKLY
     Route: 065

REACTIONS (3)
  - Pyrexia [Unknown]
  - Cough [Unknown]
  - Dyspnoea [Unknown]
